FAERS Safety Report 17972970 (Version 1)
Quarter: 2020Q3

REPORT INFORMATION
  Report Type: Spontaneous
  Country: US (occurrence: US)
  Receive Date: 20200701
  Receipt Date: 20200701
  Transmission Date: 20201103
  Serious: Yes (Hospitalization)
  Sender: FDA-Public Use
  Company Number: None

PATIENT
  Age: 62 Year
  Sex: Female

DRUGS (9)
  1. SYMICORT [Concomitant]
     Active Substance: BUDESONIDE\FORMOTEROL FUMARATE DIHYDRATE
  2. OXYCODONE AND ACETAMINOPHEN [Concomitant]
     Active Substance: ACETAMINOPHEN\OXYCODONE HYDROCHLORIDE
  3. IBRANCE [Suspect]
     Active Substance: PALBOCICLIB
     Indication: BREAST CANCER FEMALE
     Route: 048
     Dates: start: 20200603
  4. PRENISONE [Concomitant]
     Active Substance: PREDNISONE
  5. VENTOLIN [Concomitant]
     Active Substance: ALBUTEROL SULFATE
  6. XARELTO [Concomitant]
     Active Substance: RIVAROXABAN
  7. GABAPENTIN. [Concomitant]
     Active Substance: GABAPENTIN
  8. DRONABINOL. [Concomitant]
     Active Substance: DRONABINOL
  9. ALBUTEROL. [Concomitant]
     Active Substance: ALBUTEROL

REACTIONS (1)
  - Hospitalisation [None]
